FAERS Safety Report 13105222 (Version 1)
Quarter: 2017Q1

REPORT INFORMATION
  Report Type: Spontaneous
  Country: TR (occurrence: TR)
  Receive Date: 20170111
  Receipt Date: 20170111
  Transmission Date: 20170428
  Serious: Yes (Other)
  Sender: FDA-Public Use
  Company Number: TR-IPSEN BIOPHARMACEUTICALS, INC.-2017-00108

PATIENT
  Age: 58 Year
  Sex: Male

DRUGS (1)
  1. LANREOTIDE [Suspect]
     Active Substance: LANREOTIDE
     Indication: ACROMEGALY
     Dosage: 120 MG
     Route: 065

REACTIONS (3)
  - Hypopituitarism [Unknown]
  - Glioblastoma multiforme [Unknown]
  - Drug ineffective [Unknown]
